FAERS Safety Report 7649072-1 (Version None)
Quarter: 2011Q3

REPORT INFORMATION
  Report Type: 
  Country: None (occurrence: None)
  Receive Date: 20110726
  Receipt Date: 20110711
  Transmission Date: 20111222
  Serious: Yes (Death)
  Sender: FDA-Public Use
  Company Number: FR-005762

PATIENT
  Sex: Male

DRUGS (4)
  1. ALKA SELTZER PLUS /00002701/ [Concomitant]
  2. CASODEX [Suspect]
     Indication: PROSTATE CANCER
     Dosage: (50 MG ORAL)
     Route: 048
     Dates: start: 20101201, end: 20110501
  3. FIRMAGON [Suspect]
     Indication: PROSTATE CANCER
     Dosage: (80 MG   1X/MONTH SUBCUTANEOUS)
     Route: 058
     Dates: start: 20101201, end: 20110428
  4. AVODART [Suspect]
     Indication: PROSTATE CANCER
     Dosage: (0.5 MG   ORAL)
     Route: 048
     Dates: start: 20101201, end: 20110501

REACTIONS (16)
  - DUODENAL ULCER PERFORATION [None]
  - MULTI-ORGAN FAILURE [None]
  - ASCITES [None]
  - CONVULSION [None]
  - SINUS BRADYCARDIA [None]
  - HEPATITIS FULMINANT [None]
  - HAEMATEMESIS [None]
  - CARDIAC ARREST [None]
  - HEPATIC NECROSIS [None]
  - HAEMODYNAMIC INSTABILITY [None]
  - PLEURAL EFFUSION [None]
  - ACIDOSIS [None]
  - COMA [None]
  - BRAIN OEDEMA [None]
  - DECREASED APPETITE [None]
  - INFECTIOUS PERITONITIS [None]
